FAERS Safety Report 10016257 (Version 1)
Quarter: 2014Q1

REPORT INFORMATION
  Report Type: Spontaneous
  Country: GB (occurrence: GB)
  Receive Date: 20140317
  Receipt Date: 20140317
  Transmission Date: 20141002
  Serious: Yes (Other)
  Sender: FDA-Public Use
  Company Number: GB-WATSON-2014-04581

PATIENT
  Age: 83 Year
  Sex: Male

DRUGS (2)
  1. RIFAMPICIN (UNKNOWN) [Suspect]
     Indication: POST PROCEDURAL INFECTION
     Dosage: UNK
     Route: 065
  2. CLINDAMYCIN (UNKNOWN) [Suspect]
     Indication: POST PROCEDURAL INFECTION
     Dosage: UNK
     Route: 065

REACTIONS (1)
  - Acute generalised exanthematous pustulosis [Unknown]
